FAERS Safety Report 6504724-1 (Version None)
Quarter: 2009Q4

REPORT INFORMATION
  Report Type: 
  Country: None (occurrence: None)
  Receive Date: 20091218
  Receipt Date: 20090612
  Transmission Date: 20100525
  Serious: No
  Sender: FDA-Public Use
  Company Number: A0792061A

PATIENT
  Age: 47 Year
  Sex: Male

DRUGS (7)
  1. TRIZIVIR [Suspect]
     Indication: HIV INFECTION
     Route: 065
     Dates: start: 20071101
  2. PREZISTA [Suspect]
     Indication: HIV INFECTION
     Dosage: 600MG TWICE PER DAY
     Route: 048
     Dates: start: 20071101
  3. INTELENCE [Suspect]
     Indication: HIV INFECTION
     Dosage: 200MG TWICE PER DAY
     Route: 048
     Dates: start: 20071101
  4. VIREAD [Suspect]
     Indication: HIV INFECTION
     Route: 065
     Dates: start: 20071101
  5. NORVIR [Suspect]
     Indication: HIV INFECTION
     Route: 065
     Dates: start: 20071101
  6. ISENTRESS [Suspect]
     Indication: HIV INFECTION
     Route: 065
     Dates: start: 20071101
  7. ANTIDEPRESSANTS [Concomitant]

REACTIONS (1)
  - ADVERSE DRUG REACTION [None]
